FAERS Safety Report 8901578 (Version 1)
Quarter: 2012Q4

REPORT INFORMATION
  Report Type: Spontaneous
  Country: US (occurrence: None)
  Receive Date: 20121108
  Receipt Date: 20121108
  Transmission Date: 20130627
  Serious: Yes (Other)
  Sender: FDA-Public Use
  Company Number: None

PATIENT
  Age: 62 Year
  Sex: Female

DRUGS (1)
  1. FORTEO [Suspect]
     Indication: OSTEOPOROSIS
     Dates: start: 20120229, end: 20121105

REACTIONS (5)
  - Heart rate irregular [None]
  - Condition aggravated [None]
  - Pain in extremity [None]
  - Arthralgia [None]
  - Muscle spasms [None]
